FAERS Safety Report 25309124 (Version 5)
Quarter: 2025Q3

REPORT INFORMATION
  Report Type: Report from Study
  Country: US (occurrence: US)
  Receive Date: 20250513
  Receipt Date: 20250731
  Transmission Date: 20251021
  Serious: No
  Sender: MALLINCKRODT
  Company Number: US-MALLINCKRODT-MNK202501117

PATIENT
  Age: 81 Year
  Sex: Male

DRUGS (24)
  1. CORTICOTROPIN [Suspect]
     Active Substance: CORTICOTROPIN
     Indication: Ocular pemphigoid
     Route: 058
     Dates: start: 20241105, end: 202411
  2. CORTICOTROPIN [Suspect]
     Active Substance: CORTICOTROPIN
     Indication: Ocular pemphigoid
     Dates: start: 20241115
  3. CORTICOTROPIN [Suspect]
     Active Substance: CORTICOTROPIN
     Indication: Illness
  4. CORTICOTROPIN [Suspect]
     Active Substance: CORTICOTROPIN
     Indication: Eye disorder
  5. FLOMAX [Concomitant]
     Active Substance: TAMSULOSIN HYDROCHLORIDE
  6. XARELTO [Concomitant]
     Active Substance: RIVAROXABAN
  7. MAGNESIUM OXIDE [Concomitant]
     Active Substance: MAGNESIUM OXIDE
  8. LOTEMAX [Concomitant]
     Active Substance: LOTEPREDNOL ETABONATE
  9. ATIVAN [Concomitant]
     Active Substance: LORAZEPAM
  10. LISINOPRIL [Concomitant]
     Active Substance: LISINOPRIL
  11. PROSCAR [Concomitant]
     Active Substance: FINASTERIDE
  12. ATORVASTATIN CALCIUM [Concomitant]
     Active Substance: ATORVASTATIN CALCIUM
  13. REFRESH TEARS LUBRICANT [Concomitant]
     Active Substance: CARBOXYMETHYLCELLULOSE SODIUM
  14. NORVASC [Concomitant]
     Active Substance: AMLODIPINE BESYLATE
  15. ACETYLCYSTEINE [Concomitant]
     Active Substance: ACETYLCYSTEINE
  16. CELLCEPT [Concomitant]
     Active Substance: MYCOPHENOLATE MOFETIL
  17. DOXYCYCLINE HYCLATE [Concomitant]
     Active Substance: DOXYCYCLINE HYCLATE
  18. IYUZEH [Concomitant]
     Active Substance: LATANOPROST
  19. MURO 128 [Concomitant]
     Active Substance: SODIUM CHLORIDE
  20. RESTASIS [Concomitant]
     Active Substance: CYCLOSPORINE
  21. CIPROFLOXACIN\DEXAMETHASONE [Concomitant]
     Active Substance: CIPROFLOXACIN\DEXAMETHASONE
  22. APRESOLINE HYDROCHLORIDE [Concomitant]
     Active Substance: HYDRALAZINE HYDROCHLORIDE
  23. BESIVANCE [Concomitant]
     Active Substance: BESIFLOXACIN
  24. HYDRODIURIL [Concomitant]
     Active Substance: HYDROCHLOROTHIAZIDE

REACTIONS (9)
  - Gastrointestinal disorder [Recovered/Resolved]
  - Dyspnoea [Recovered/Resolved]
  - Photophobia [Recovered/Resolved]
  - Sleep disorder [Not Recovered/Not Resolved]
  - Herpes zoster [Recovered/Resolved]
  - Skin atrophy [Not Recovered/Not Resolved]
  - Increased tendency to bruise [Recovered/Resolved]
  - Blood potassium decreased [Recovered/Resolved]
  - Drug ineffective [Unknown]

NARRATIVE: CASE EVENT DATE: 20250401
